FAERS Safety Report 9352361 (Version 2)
Quarter: 2013Q3

REPORT INFORMATION
  Report Type: Spontaneous
  Country: US (occurrence: US)
  Receive Date: 20130617
  Receipt Date: 20130709
  Transmission Date: 20140515
  Serious: No
  Sender: FDA-Public Use
  Company Number: US-009507513-1305USA017195

PATIENT
  Age: 52 Year
  Sex: Female
  Weight: 49.89 kg

DRUGS (7)
  1. CLARITIN [Suspect]
     Indication: SNEEZING
     Dosage: 10 MG, QAM
     Route: 048
     Dates: start: 201304, end: 201305
  2. CLARITIN [Suspect]
     Indication: RHINORRHOEA
  3. CLARITIN [Suspect]
     Indication: LACRIMATION INCREASED
  4. CLARITIN [Suspect]
     Indication: NASAL DISCOMFORT
  5. CLARITIN [Suspect]
     Indication: HYPERSENSITIVITY
  6. BUPROPION HYDROCHLORIDE [Concomitant]
     Indication: PRODUCT USED FOR UNKNOWN INDICATION
     Dosage: 300 MG, QD
  7. SERTRALINE HYDROCHLORIDE [Concomitant]
     Indication: PRODUCT USED FOR UNKNOWN INDICATION
     Dosage: 300 MG, QD

REACTIONS (1)
  - Drug ineffective [Unknown]
